FAERS Safety Report 7984890-1 (Version None)
Quarter: 2011Q4

REPORT INFORMATION
  Report Type: 
  Country: None (occurrence: None)
  Receive Date: 20111216
  Receipt Date: 20111005
  Transmission Date: 20120403
  Serious: No
  Sender: FDA-Public Use
  Company Number: US-ALLERGAN-1113173US

PATIENT
  Age: 57 Year
  Sex: Female

DRUGS (2)
  1. VISINE                             /00256502/ [Concomitant]
     Dosage: UNK
  2. LATISSE [Suspect]
     Indication: GROWTH OF EYELASHES
     Dosage: 1 GTT, UNK
     Route: 061
     Dates: start: 20100101

REACTIONS (3)
  - THERAPY CESSATION [None]
  - MADAROSIS [None]
  - HAIR DISORDER [None]
